FAERS Safety Report 17832682 (Version 1)
Quarter: 2020Q2

REPORT INFORMATION
  Report Type: Spontaneous
  Country: US (occurrence: US)
  Receive Date: 20200528
  Receipt Date: 20200528
  Transmission Date: 20200714
  Serious: No
  Sender: FDA-Public Use
  Company Number: US-UCBSA-2020005693

PATIENT
  Age: 20 Year
  Sex: Female

DRUGS (4)
  1. CIMZIA [Suspect]
     Active Substance: CERTOLIZUMAB PEGOL
     Indication: HIDRADENITIS
     Dosage: UNK
     Dates: start: 2019, end: 2019
  2. HUMIRA [Concomitant]
     Active Substance: ADALIMUMAB
     Indication: HIDRADENITIS
  3. CIMZIA [Suspect]
     Active Substance: CERTOLIZUMAB PEGOL
     Indication: OFF LABEL USE
  4. REMICADE [Concomitant]
     Active Substance: INFLIXIMAB
     Indication: HIDRADENITIS

REACTIONS (2)
  - Drug ineffective [Unknown]
  - Off label use [Unknown]
